FAERS Safety Report 12681547 (Version 1)
Quarter: 2016Q3

REPORT INFORMATION
  Report Type: Report from Study
  Country: US (occurrence: US)
  Receive Date: 20160824
  Receipt Date: 20160824
  Transmission Date: 20161109
  Serious: No
  Sender: FDA-Public Use
  Company Number: US-AMGEN-USASL2016106845

PATIENT
  Age: 64 Year
  Sex: Female

DRUGS (1)
  1. ENBREL [Suspect]
     Active Substance: ETANERCEPT
     Indication: PRODUCT USED FOR UNKNOWN INDICATION
     Dosage: UNK
     Route: 065
     Dates: end: 201608

REACTIONS (7)
  - Joint swelling [Recovered/Resolved]
  - Vertigo [Recovered/Resolved]
  - Back pain [Unknown]
  - Peripheral swelling [Recovered/Resolved]
  - Pain [Not Recovered/Not Resolved]
  - Constipation [Unknown]
  - Headache [Recovered/Resolved]

NARRATIVE: CASE EVENT DATE: 201608
